FAERS Safety Report 18946597 (Version 1)
Quarter: 2021Q1

REPORT INFORMATION
  Report Type: Spontaneous
  Country: AU (occurrence: AU)
  Receive Date: 20210226
  Receipt Date: 20210226
  Transmission Date: 20210420
  Serious: Yes (Life-Threatening, Other)
  Sender: FDA-Public Use
  Company Number: AU-PFIZER INC-2021175584

PATIENT
  Age: 72 Year
  Sex: Male

DRUGS (7)
  1. PREDNISOLONE. [Concomitant]
     Active Substance: PREDNISOLONE
     Indication: POLYMYALGIA RHEUMATICA
     Dosage: LOW?DOSE
  2. CALCIUM CHLORIDE. [Concomitant]
     Active Substance: CALCIUM CHLORIDE
     Indication: HYPERKALAEMIA
     Dosage: 20 MMOL
  3. NORADRENALINE (NORPINEPHRINE) [Concomitant]
     Active Substance: NOREPINEPHRINE
     Dosage: 0.2 UG/KG
  4. POTASSIUM [Concomitant]
     Active Substance: POTASSIUM
     Dosage: 0.2 UG/KG
  5. CALCIUM RESONIUM [Concomitant]
     Indication: HYPERKALAEMIA
     Dosage: 60 G
  6. EPINEPHRINE. [Suspect]
     Active Substance: EPINEPHRINE
     Dosage: 0.16 UG/KG
  7. FRUSEMIDE [FUROSEMIDE] [Concomitant]
     Active Substance: FUROSEMIDE
     Indication: HYPERKALAEMIA
     Dosage: 80 MG (LARGER DOSE)

REACTIONS (4)
  - Vascular resistance systemic decreased [Unknown]
  - Hyperglycaemia [Unknown]
  - Metabolic acidosis [Unknown]
  - Cardiac output increased [Unknown]
